FAERS Safety Report 15468791 (Version 1)
Quarter: 2018Q4

REPORT INFORMATION
  Report Type: Spontaneous
  Country: US (occurrence: US)
  Receive Date: 20181005
  Receipt Date: 20181005
  Transmission Date: 20190204
  Serious: Yes (Other)
  Sender: FDA-Public Use
  Company Number: US-JNJFOC-20180931846

PATIENT

DRUGS (1)
  1. EVICEL [Suspect]
     Active Substance: FIBRINOGEN HUMAN\THROMBIN HUMAN
     Indication: TISSUE SEALING
     Route: 065

REACTIONS (5)
  - Pyogenic granuloma [Unknown]
  - Conjunctival cyst [Unknown]
  - Off label use [Unknown]
  - Pterygium [Unknown]
  - Product use in unapproved indication [Unknown]
